FAERS Safety Report 8902066 (Version 1)
Quarter: 2012Q4

REPORT INFORMATION
  Report Type: 
  Country: DE (occurrence: DE)
  Receive Date: 20121112
  Receipt Date: 20121112
  Transmission Date: 20130627
  Serious: Yes (Hospitalization)
  Sender: FDA-Public Use
  Company Number: DE-TEVA-366872GER

PATIENT
  Sex: Male

DRUGS (1)
  1. ACICLOVIR-RATIOPHARM [Suspect]
     Route: 048

REACTIONS (2)
  - Spinal column stenosis [Unknown]
  - Feeling abnormal [Unknown]
